FAERS Safety Report 5496278-6 (Version None)
Quarter: 2007Q4

REPORT INFORMATION
  Report Type: 
  Country: None (occurrence: None)
  Receive Date: 20071025
  Receipt Date: 20070320
  Transmission Date: 20080405
  Serious: No
  Sender: FDA-Public Use
  Company Number: A0643939A

PATIENT
  Age: 75 Year
  Sex: Male

DRUGS (5)
  1. ADVAIR DISKUS 100/50 [Suspect]
     Indication: BRONCHITIS
     Dosage: 1PUFF TWICE PER DAY
     Route: 055
     Dates: start: 20070320
  2. AZITHROMYCIN [Concomitant]
  3. PLAVIX [Concomitant]
  4. ZETIA [Concomitant]
  5. ALTACE [Concomitant]

REACTIONS (1)
  - ACCIDENTAL OVERDOSE [None]
